FAERS Safety Report 8968347 (Version 1)
Quarter: 2012Q4

REPORT INFORMATION
  Report Type: Report from Study
  Country: US (occurrence: US)
  Receive Date: 20121217
  Receipt Date: 20121217
  Transmission Date: 20130627
  Serious: Yes (Other)
  Sender: FDA-Public Use
  Company Number: US-ROCHE-1170097

PATIENT
  Age: 47 Year
  Sex: Male
  Weight: 76.3 kg

DRUGS (3)
  1. VEMURAFENIB [Suspect]
     Indication: MALIGNANT MELANOMA
     Route: 048
     Dates: start: 2011, end: 20120930
  2. VEMURAFENIB [Suspect]
     Route: 048
     Dates: start: 20111228, end: 20121001
  3. VEMURAFENIB [Suspect]
     Route: 048

REACTIONS (2)
  - Skin neoplasm excision [Unknown]
  - Melanoma recurrent [Recovered/Resolved]
